FAERS Safety Report 25899639 (Version 1)
Quarter: 2025Q4

REPORT INFORMATION
  Report Type: Spontaneous
  Country: US (occurrence: US)
  Receive Date: 20251009
  Receipt Date: 20251009
  Transmission Date: 20260118
  Serious: No
  Sender: SANDOZ
  Company Number: US-SANDOZ-SDZ2025US073222

PATIENT
  Sex: Female

DRUGS (1)
  1. ALBUTEROL SULFATE [Suspect]
     Active Substance: ALBUTEROL SULFATE
     Indication: Cough
     Dosage: QD, ONE SPRAY/PUMP (90 MCG)
     Route: 055

REACTIONS (3)
  - Product use in unapproved indication [Unknown]
  - Drug dose omission by device [Unknown]
  - Device leakage [Unknown]
